FAERS Safety Report 13007267 (Version 1)
Quarter: 2016Q4

REPORT INFORMATION
  Report Type: Spontaneous
  Country: GB (occurrence: GB)
  Receive Date: 20161207
  Receipt Date: 20161207
  Transmission Date: 20170207
  Serious: Yes (Other)
  Sender: FDA-Public Use
  Company Number: GB-009507513-1611GBR014045

PATIENT
  Sex: Male

DRUGS (5)
  1. RALTEGRAVIR POTASSIUM [Suspect]
     Active Substance: RALTEGRAVIR POTASSIUM
     Dosage: 800 DF (UNITS NOT REPORTED), QD
     Route: 064
     Dates: start: 2014
  2. RITONAVIR. [Suspect]
     Active Substance: RITONAVIR
     Dosage: 100 DF (UNITS NOT REPORTED), QD
     Route: 064
  3. EMTRICITABINE (+) TENOFOVIR DISOPROXIL FUMARATE [Suspect]
     Active Substance: EMTRICITABINE\TENOFOVIR DISOPROXIL
     Dosage: 1 DF (UNITS NOT REPORTED), QD
     Route: 064
  4. RITONAVIR. [Suspect]
     Active Substance: RITONAVIR
     Dosage: 200 DF (UNITS NOT REPORTED), QD
     Route: 064
     Dates: start: 2014
  5. DARUNAVIR [Suspect]
     Active Substance: DARUNAVIR
     Dosage: 1200 DF (UNITS NOT REPORTED), QD
     Route: 064
     Dates: start: 2014

REACTIONS (2)
  - Foetal exposure during pregnancy [Recovered/Resolved]
  - Low birth weight baby [Unknown]

NARRATIVE: CASE EVENT DATE: 20140501
